FAERS Safety Report 15649735 (Version 1)
Quarter: 2018Q4

REPORT INFORMATION
  Report Type: Spontaneous
  Country: US (occurrence: US)
  Receive Date: 20181122
  Receipt Date: 20181122
  Transmission Date: 20190205
  Serious: No
  Sender: FDA-Public Use
  Company Number: US-009507513-1811USA004556

PATIENT
  Sex: Female

DRUGS (2)
  1. ASMANEX HFA [Suspect]
     Active Substance: MOMETASONE FUROATE
     Dosage: 2 DOSAGE FORM, BID
     Route: 055
     Dates: start: 2017
  2. ASMANEX HFA [Suspect]
     Active Substance: MOMETASONE FUROATE
     Dosage: 2 DOSAGE FORM, BID
     Route: 055
     Dates: start: 201810

REACTIONS (4)
  - Poor quality device used [Unknown]
  - Incorrect dose administered by product [Unknown]
  - Product quality issue [Unknown]
  - Adverse event [Unknown]

NARRATIVE: CASE EVENT DATE: 2018
